FAERS Safety Report 8801998 (Version 2)
Quarter: 2012Q4

REPORT INFORMATION
  Report Type: 
  Country: US (occurrence: US)
  Receive Date: 20120921
  Receipt Date: 20121114
  Transmission Date: 20130627
  Serious: No
  Sender: FDA-Public Use
  Company Number: US-TEVA-358893USA

PATIENT
  Sex: Female
  Weight: 78.54 kg

DRUGS (2)
  1. TRISENOX [Suspect]
     Indication: ACUTE PROMYELOCYTIC LEUKAEMIA
  2. ALOXI [Concomitant]

REACTIONS (5)
  - Weight increased [Recovered/Resolved]
  - Renal impairment [Not Recovered/Not Resolved]
  - Muscle tightness [Unknown]
  - Oedema peripheral [Unknown]
  - Swelling face [Unknown]
